FAERS Safety Report 8125183-1 (Version None)
Quarter: 2012Q1

REPORT INFORMATION
  Report Type: 
  Country: None (occurrence: None)
  Receive Date: 20120206
  Receipt Date: 20120116
  Transmission Date: 20120608
  Serious: Yes (Hospitalization)
  Sender: FDA-Public Use
  Company Number: 20120007

PATIENT
  Age: 34 Year
  Sex: Female

DRUGS (1)
  1. VENOFER [Suspect]
     Indication: POSTPARTUM HAEMORRHAGE
     Dosage: 1 AMPOULE/ 100 ML SALINE INTRAVENOUS DRIP
     Route: 041
     Dates: start: 20111229

REACTIONS (4)
  - INFUSION SITE PAIN [None]
  - INFUSION SITE DISCOLOURATION [None]
  - INFUSION SITE EXTRAVASATION [None]
  - INFUSION SITE OEDEMA [None]
